FAERS Safety Report 7465285-6 (Version None)
Quarter: 2011Q2

REPORT INFORMATION
  Report Type: 
  Country: None (occurrence: None)
  Receive Date: 20110509
  Receipt Date: 20110504
  Transmission Date: 20111010
  Serious: Yes (Death)
  Sender: FDA-Public Use
  Company Number: PHHY2010BR66395

PATIENT
  Sex: Male

DRUGS (2)
  1. LESCOL XL [Suspect]
     Dosage: 80 MG, UNK
     Route: 048
  2. ARAVANIS [Concomitant]

REACTIONS (1)
  - DEATH [None]
